FAERS Safety Report 25190546 (Version 1)
Quarter: 2025Q2

REPORT INFORMATION
  Report Type: Spontaneous
  Country: CZ (occurrence: CZ)
  Receive Date: 20250411
  Receipt Date: 20250411
  Transmission Date: 20250716
  Serious: Yes (Other)
  Sender: NOVARTIS
  Company Number: CZ-002147023-NVSC2025CZ059315

PATIENT
  Sex: Female

DRUGS (1)
  1. COSENTYX [Suspect]
     Active Substance: SECUKINUMAB
     Indication: Hidradenitis
     Route: 065
     Dates: start: 202212, end: 202405

REACTIONS (5)
  - Otitis media chronic [Unknown]
  - Mastoiditis [Unknown]
  - Ear disorder [Unknown]
  - Psoriasis [Not Recovered/Not Resolved]
  - Peripheral nerve paresis [Unknown]
